FAERS Safety Report 10866034 (Version 2)
Quarter: 2015Q2

REPORT INFORMATION
  Report Type: Report from Study
  Country: BR (occurrence: BR)
  Receive Date: 20150225
  Receipt Date: 20150528
  Transmission Date: 20150821
  Serious: Yes (Hospitalization)
  Sender: FDA-Public Use
  Company Number: PHHY2015BR021395

PATIENT
  Sex: Female
  Weight: 57 kg

DRUGS (3)
  1. ACLASTA [Suspect]
     Active Substance: ZOLEDRONIC ACID
     Indication: OSTEOPOROSIS
     Dosage: 5 MG 100 ML (ONCE A YEAR)
     Route: 042
     Dates: start: 2014
  2. DOREN [Concomitant]
     Indication: FIBROMYALGIA
     Dosage: 2 DF, QD
     Route: 048
  3. VELIJA [Concomitant]
     Active Substance: DULOXETINE HYDROCHLORIDE
     Indication: DEPRESSION
     Dosage: 2 DF, QD
     Route: 048

REACTIONS (3)
  - Panic disorder [Not Recovered/Not Resolved]
  - Depression [Recovering/Resolving]
  - Schizophrenia [Not Recovered/Not Resolved]
